FAERS Safety Report 5629221-7 (Version None)
Quarter: 2008Q1

REPORT INFORMATION
  Report Type: 
  Country: None (occurrence: None)
  Receive Date: 20080217
  Receipt Date: 20070503
  Transmission Date: 20080703
  Serious: No
  Sender: FDA-Public Use
  Company Number: US-BAYER-US-2007-016073

PATIENT
  Sex: Female

DRUGS (1)
  1. FINACEA [Suspect]
     Route: 061

REACTIONS (3)
  - ERYTHEMA [None]
  - FACIAL PAIN [None]
  - SKIN IRRITATION [None]
